FAERS Safety Report 8670465 (Version 1)
Quarter: 2012Q4

REPORT INFORMATION
  Report Type: 
  Country: PT (occurrence: PT)
  Receive Date: 20120904
  Receipt Date: 20120904
  Transmission Date: 20130627
  Serious: Yes (Death, Hospitalization)
  Sender: FDA-Public Use
  Company Number: PT-BAXTER-2012BAX010038

PATIENT
  Age: 76 Year
  Sex: Female

DRUGS (2)
  1. EXTRANEAL [Suspect]
     Indication: AUTOMATED PERITONEAL DIALYSIS
     Route: 033
     Dates: start: 20120606, end: 20120622
  2. PHYSIONEAL [Suspect]
     Indication: AUTOMATED PERITONEAL DIALYSIS
     Route: 033
     Dates: start: 20120606, end: 20120622

REACTIONS (4)
  - Pneumoperitoneum [Unknown]
  - Peritoneal haemorrhage [Unknown]
  - Post procedural complication [Fatal]
  - Haemodynamic instability [None]
